FAERS Safety Report 7526138-8 (Version None)
Quarter: 2011Q2

REPORT INFORMATION
  Report Type: 
  Country: None (occurrence: None)
  Receive Date: 20110527
  Receipt Date: 20101105
  Transmission Date: 20111010
  Serious: Yes (Hospitalization)
  Sender: FDA-Public Use
  Company Number: 7024706

PATIENT
  Age: 59 Year
  Sex: Male
  Weight: 66 kg

DRUGS (6)
  1. ESMOLOL (ESMOLOL) [Concomitant]
  2. CYANOKIT [Suspect]
     Indication: TOXICITY TO VARIOUS AGENTS
     Dosage: 5 GM, ONCE, INTRAVENOUS (NOT OTHERWISE SPECIFIED)
     Route: 042
     Dates: start: 20101026, end: 20101026
  3. NICARDIPINE HCL [Concomitant]
  4. SODIUM THIOSULFATE (SODIUM THIOSULFATE) [Concomitant]
  5. CYANOCOBALAMIN [Concomitant]
  6. SODIUM NITROPRUSSIDE INJ [Concomitant]

REACTIONS (2)
  - CHROMATURIA [None]
  - DEVICE ALARM ISSUE [None]
